FAERS Safety Report 8218297-9 (Version None)
Quarter: 2012Q1

REPORT INFORMATION
  Report Type: 
  Country: None (occurrence: None)
  Receive Date: 20120319
  Receipt Date: 20120308
  Transmission Date: 20120608
  Serious: Yes (Hospitalization, Other)
  Sender: FDA-Public Use
  Company Number: US-ROCHE-784214

PATIENT
  Sex: Male
  Weight: 81.72 kg

DRUGS (3)
  1. ACCUTANE [Suspect]
     Route: 065
     Dates: start: 20000501, end: 20020501
  2. ACCUTANE [Suspect]
     Dates: start: 20030601, end: 20050601
  3. ACCUTANE [Suspect]
     Indication: ACNE
     Route: 048
     Dates: start: 19970101, end: 19990101

REACTIONS (5)
  - CROHN'S DISEASE [None]
  - SUBCUTANEOUS ABSCESS [None]
  - COLITIS ULCERATIVE [None]
  - INFLAMMATORY BOWEL DISEASE [None]
  - IRRITABLE BOWEL SYNDROME [None]
